FAERS Safety Report 15007778 (Version 2)
Quarter: 2019Q3

REPORT INFORMATION
  Report Type: Report from Study
  Country: BR (occurrence: BR)
  Receive Date: 20180613
  Receipt Date: 20190719
  Transmission Date: 20191004
  Serious: Yes (Other)
  Sender: FDA-Public Use
  Company Number: PHHY2017BR171376

PATIENT
  Age: 50 Year
  Sex: Male
  Weight: 105 kg

DRUGS (14)
  1. COSENTYX [Suspect]
     Active Substance: SECUKINUMAB
     Dosage: UNK
     Route: 030
     Dates: start: 20180410
  2. CYMBALTA [Concomitant]
     Active Substance: DULOXETINE HYDROCHLORIDE
     Indication: DEPRESSION
     Dosage: UNK
     Route: 065
  3. PARACETAMOL [Concomitant]
     Active Substance: ACETAMINOPHEN
     Indication: HEADACHE
     Dosage: UNK
     Route: 065
  4. COSENTYX [Suspect]
     Active Substance: SECUKINUMAB
     Dosage: UNK
     Route: 058
     Dates: start: 20171117
  5. COSENTYX [Suspect]
     Active Substance: SECUKINUMAB
     Dosage: UNK
     Route: 065
     Dates: start: 20180309
  6. COSENTYX [Suspect]
     Active Substance: SECUKINUMAB
     Dosage: UNK
     Route: 065
  7. OMEPRAZOLE. [Concomitant]
     Active Substance: OMEPRAZOLE
     Indication: PRODUCT USED FOR UNKNOWN INDICATION
     Dosage: UNK
     Route: 065
  8. COSENTYX [Suspect]
     Active Substance: SECUKINUMAB
     Indication: OSTEOPOROSIS
     Dosage: 150 MG, QMO (2 AMPOULES IN A MONTH)
     Route: 065
  9. COSENTYX [Suspect]
     Active Substance: SECUKINUMAB
     Indication: FIBROMYALGIA
     Dosage: UNK UNK, QMO
     Route: 058
  10. COSENTYX [Suspect]
     Active Substance: SECUKINUMAB
     Dosage: 150 MG, QMO
     Route: 058
     Dates: start: 20180509
  11. ENALAPRIL [Concomitant]
     Active Substance: ENALAPRIL
     Indication: PRODUCT USED FOR UNKNOWN INDICATION
     Dosage: UNK
     Route: 065
  12. DRAMAMINE [Concomitant]
     Active Substance: DIMENHYDRINATE
     Indication: NAUSEA
     Dosage: UNK
     Route: 065
  13. COSENTYX [Suspect]
     Active Substance: SECUKINUMAB
     Indication: ANKYLOSING SPONDYLITIS
     Dosage: 150 MG/ML, QW
     Route: 058
     Dates: start: 20170919
  14. IBUPROFEN. [Concomitant]
     Active Substance: IBUPROFEN
     Indication: PRODUCT USED FOR UNKNOWN INDICATION
     Route: 065

REACTIONS (30)
  - Blindness unilateral [Unknown]
  - Fibromyalgia [Unknown]
  - Insomnia [Unknown]
  - Pain [Unknown]
  - Malaise [Not Recovered/Not Resolved]
  - Movement disorder [Not Recovered/Not Resolved]
  - Visual impairment [Unknown]
  - Body height decreased [Unknown]
  - Mass [Unknown]
  - Blood pressure decreased [Recovering/Resolving]
  - Therapeutic response shortened [Unknown]
  - Musculoskeletal stiffness [Unknown]
  - Spinal pain [Unknown]
  - Incorrect route of product administration [Unknown]
  - Pain in extremity [Unknown]
  - Product use in unapproved indication [Unknown]
  - Osteoporosis [Unknown]
  - Condition aggravated [Unknown]
  - Back pain [Recovering/Resolving]
  - Headache [Recovering/Resolving]
  - Nervous system disorder [Unknown]
  - Ligament rupture [Unknown]
  - Muscle atrophy [Unknown]
  - Dyspnoea [Recovering/Resolving]
  - Arthritis [Unknown]
  - Cough [Unknown]
  - Limb deformity [Unknown]
  - Euphoric mood [Unknown]
  - Ill-defined disorder [Unknown]
  - Sneezing [Unknown]

NARRATIVE: CASE EVENT DATE: 20180312
